FAERS Safety Report 8301556-9 (Version None)
Quarter: 2012Q2

REPORT INFORMATION
  Report Type: 
  Country: None (occurrence: None)
  Receive Date: 20120420
  Receipt Date: 20120417
  Transmission Date: 20120825
  Serious: Yes (Other)
  Sender: FDA-Public Use
  Company Number: PHHY2011US61432

PATIENT
  Sex: Male
  Weight: 146 kg

DRUGS (3)
  1. GILENYA [Suspect]
     Indication: RELAPSING-REMITTING MULTIPLE SCLEROSIS
     Dosage: 0.5 MG, DAILY
     Route: 048
     Dates: start: 20110624, end: 20120125
  2. FLONASE [Concomitant]
  3. ALLEGRY [Concomitant]

REACTIONS (7)
  - HEAT EXHAUSTION [None]
  - ABDOMINAL PAIN UPPER [None]
  - FATIGUE [None]
  - WEIGHT DECREASED [None]
  - DIARRHOEA [None]
  - DEFAECATION URGENCY [None]
  - ABDOMINAL DISCOMFORT [None]
